FAERS Safety Report 6797563 (Version 11)
Quarter: 2017Q3

REPORT INFORMATION
  Report Type: Spontaneous
  Country: US (occurrence: US)
  Receive Date: 20081028
  Receipt Date: 20170928
  Transmission Date: 20171128
  Serious: Yes (Disabling, Other)
  Sender: FDA-Public Use
  Company Number: US-BAYER-200836015NA

PATIENT
  Age: 56 Year
  Sex: Male
  Weight: 115.65 kg

DRUGS (34)
  1. OMNISCAN [Suspect]
     Active Substance: GADODIAMIDE
     Indication: NUCLEAR MAGNETIC RESONANCE IMAGING BRAIN
     Dates: start: 20031111, end: 20031111
  2. BIAXIN [Concomitant]
     Active Substance: CLARITHROMYCIN
  3. ACTOS [Concomitant]
     Active Substance: PIOGLITAZONE HYDROCHLORIDE
  4. SINGULAIR [Concomitant]
     Active Substance: MONTELUKAST SODIUM
  5. TRICOR [Concomitant]
     Active Substance: FENOFIBRATE
  6. MAGNEVIST [Suspect]
     Active Substance: GADOPENTETATE DIMEGLUMINE
     Indication: NUCLEAR MAGNETIC RESONANCE IMAGING
     Dosage: UNK
     Dates: start: 20060510, end: 20060510
  7. MULTIHANCE [Suspect]
     Active Substance: GADOBENATE DIMEGLUMINE
     Indication: NUCLEAR MAGNETIC RESONANCE IMAGING
     Dates: start: 20070822, end: 20070822
  8. CYCLOBENZAPRINE. [Concomitant]
     Active Substance: CYCLOBENZAPRINE
  9. AMBIEN [Concomitant]
     Active Substance: ZOLPIDEM TARTRATE
  10. ALPRAZOLAM. [Concomitant]
     Active Substance: ALPRAZOLAM
  11. CELEBREX [Concomitant]
     Active Substance: CELECOXIB
  12. ADVAIR HFA [Concomitant]
     Active Substance: FLUTICASONE PROPIONATE\SALMETEROL XINAFOATE
  13. FUROSEMIDE. [Concomitant]
     Active Substance: FUROSEMIDE
  14. MAGNEVIST [Suspect]
     Active Substance: GADOPENTETATE DIMEGLUMINE
     Indication: NUCLEAR MAGNETIC RESONANCE IMAGING
     Dosage: 20 ML, ONCE
     Dates: start: 20040420, end: 20040420
  15. SYNTHROID [Concomitant]
     Active Substance: LEVOTHYROXINE SODIUM
  16. AVANDIA [Concomitant]
     Active Substance: ROSIGLITAZONE MALEATE
  17. PROZAC [Concomitant]
     Active Substance: FLUOXETINE HYDROCHLORIDE
  18. ZETIA [Concomitant]
     Active Substance: EZETIMIBE
  19. BYETTA [Concomitant]
     Active Substance: EXENATIDE
  20. MAGNEVIST [Suspect]
     Active Substance: GADOPENTETATE DIMEGLUMINE
     Indication: ANGIOGRAM
  21. AMARYL [Concomitant]
     Active Substance: GLIMEPIRIDE
  22. ZOCOR [Concomitant]
     Active Substance: SIMVASTATIN
  23. ACETYLSALICYLIC ACID (} 100 MG) [Concomitant]
     Active Substance: ASPIRIN
  24. LIPITOR [Concomitant]
     Active Substance: ATORVASTATIN CALCIUM
  25. PREVACID [Concomitant]
     Active Substance: LANSOPRAZOLE
  26. AGGRENOX [Concomitant]
     Active Substance: ASPIRIN\DIPYRIDAMOLE
  27. HYDROCHLOROTHIAZIDE. [Concomitant]
     Active Substance: HYDROCHLOROTHIAZIDE
  28. PREDNISONE. [Concomitant]
     Active Substance: PREDNISONE
  29. GADOLINIUM IN UNSPECIFIED DRUG [Suspect]
     Active Substance: GADOLINIUM
     Indication: NUCLEAR MAGNETIC RESONANCE IMAGING BRAIN
     Dosage: UNK
     Dates: start: 20031105, end: 20031105
  30. DIOVAN [Concomitant]
     Active Substance: VALSARTAN
  31. PLAVIX [Concomitant]
     Active Substance: CLOPIDOGREL BISULFATE
  32. PROTONIX [Concomitant]
     Active Substance: PANTOPRAZOLE SODIUM
  33. TRAMADOL. [Concomitant]
     Active Substance: TRAMADOL
  34. LANTUS [Concomitant]
     Active Substance: INSULIN GLARGINE

REACTIONS (15)
  - Pain [Not Recovered/Not Resolved]
  - Skin tightness [Not Recovered/Not Resolved]
  - Pruritus generalised [Not Recovered/Not Resolved]
  - Skin hypertrophy [Not Recovered/Not Resolved]
  - Joint range of motion decreased [Not Recovered/Not Resolved]
  - Depression [None]
  - Sensory loss [Not Recovered/Not Resolved]
  - Skin discolouration [Not Recovered/Not Resolved]
  - Scar [Not Recovered/Not Resolved]
  - Skin fibrosis [Not Recovered/Not Resolved]
  - Asthenia [Not Recovered/Not Resolved]
  - Arthralgia [Not Recovered/Not Resolved]
  - Musculoskeletal stiffness [Not Recovered/Not Resolved]
  - Nephrogenic systemic fibrosis [Not Recovered/Not Resolved]
  - Gait disturbance [Not Recovered/Not Resolved]

NARRATIVE: CASE EVENT DATE: 20080529
